FAERS Safety Report 9691715 (Version 2)
Quarter: 2014Q1

REPORT INFORMATION
  Report Type: Spontaneous
  Country: FR (occurrence: FR)
  Receive Date: 20131115
  Receipt Date: 20140127
  Transmission Date: 20141002
  Serious: Yes (Death)
  Sender: FDA-Public Use
  Company Number: FR-B.I. PHARMACEUTICALS,INC./RIDGEFIELD-2013-FF-02711FF

PATIENT
  Age: 75 Year
  Sex: Male

DRUGS (5)
  1. PRADAXA [Suspect]
     Indication: ATRIAL FIBRILLATION
     Dosage: 220 MG
     Route: 048
     Dates: start: 201211
  2. LIPANTHYL [Concomitant]
     Indication: HYPERLIPIDAEMIA
     Dosage: 160 MG
     Route: 048
  3. FLECAINE [Concomitant]
     Route: 048
  4. SPIRIVA [Concomitant]
     Indication: CHRONIC OBSTRUCTIVE PULMONARY DISEASE
     Route: 055
  5. SYMBICORT TURBUHALER [Concomitant]
     Dosage: 400/12 MCG/ DOSE
     Route: 055

REACTIONS (1)
  - Peritoneal haemorrhage [Fatal]
